FAERS Safety Report 7028342-4 (Version None)
Quarter: 2010Q4

REPORT INFORMATION
  Report Type: 
  Country: None (occurrence: None)
  Receive Date: 20101005
  Receipt Date: 20100928
  Transmission Date: 20110411
  Serious: Yes (Death, Hospitalization, Other)
  Sender: FDA-Public Use
  Company Number: JP-ROCHE-728351

PATIENT
  Sex: Male

DRUGS (11)
  1. BEVACIZUMAB [Suspect]
     Indication: COLON CANCER
     Route: 041
     Dates: start: 20100802, end: 20100823
  2. CAMPTOSAR [Suspect]
     Indication: COLON CANCER
     Route: 041
     Dates: start: 20100802, end: 20100823
  3. FLUOROURACIL [Suspect]
     Indication: COLON CANCER
     Route: 040
     Dates: start: 20100802, end: 20100823
  4. FLUOROURACIL [Suspect]
     Dosage: ROUTE: INTRAVENOUS DRIP
     Route: 040
     Dates: start: 20100802, end: 20100825
  5. LEUCOVORIN CALCIUM [Suspect]
     Indication: COLON CANCER
     Route: 041
     Dates: start: 20100802, end: 20100823
  6. CRAVIT [Suspect]
     Indication: PYREXIA
     Route: 048
     Dates: start: 20100830, end: 20100906
  7. CEFZON [Suspect]
     Indication: PYREXIA
     Route: 048
     Dates: start: 20100906, end: 20100901
  8. TAMSULOSIN HCL [Concomitant]
     Dosage: DOSE FORM: PERORAL AGENT
     Route: 048
     Dates: start: 20090101, end: 20100101
  9. HACHIAZULE [Concomitant]
     Dosage: DOSE FORM: INCLUDE ASPECT, DRUG NAME: HACHIAZULE(AZULENE SULFONATE SODIUM), UNCERTAIN DOSAGE
     Route: 048
     Dates: start: 20100830
  10. DEXALTIN [Concomitant]
     Dosage: DOSE FORM: OINTMENT AND CREAM, UNCERTAIN DOSAGE, DOSAGE ADJUSTED
     Route: 061
     Dates: start: 20100830
  11. MYSER [Concomitant]
     Dosage: DOSE ADJUSTED.
     Route: 003
     Dates: start: 20100101, end: 20100101

REACTIONS (3)
  - LUNG INFECTION [None]
  - PNEUMONIA [None]
  - RENAL IMPAIRMENT [None]
